FAERS Safety Report 9241147 (Version 1)
Quarter: 2013Q1

REPORT INFORMATION
  Report Type: Spontaneous
  Country: US (occurrence: None)
  Receive Date: 20121120
  Receipt Date: 20121120
  Transmission Date: 20140127
  Serious: No
  Sender: FDA-Public Use
  Company Number: 1000038527

PATIENT
  Age: 53 Year
  Sex: Female

DRUGS (4)
  1. VIIBRYD [Suspect]
     Indication: DEPRESSION
     Dosage: 1 IN 1 D
     Route: 048
     Dates: start: 2012, end: 2012
  2. LITHOBID (LITHIUM CARBONATE) (LITHIUM CARBONATE) [Concomitant]
  3. XANAX (ALPRAZOLAM) [Concomitant]
  4. DALMANE (FLURAZEPAM HYDROCHLORIDE) (FLURAZEPAM HYDROCHLORIDE) [Concomitant]

REACTIONS (4)
  - Memory impairment [None]
  - Abnormal behaviour [None]
  - Anxiety [None]
  - Somnolence [None]
